FAERS Safety Report 7539337-6 (Version None)
Quarter: 2011Q2

REPORT INFORMATION
  Report Type: 
  Country: None (occurrence: None)
  Receive Date: 20110610
  Receipt Date: 20110527
  Transmission Date: 20111010
  Serious: Yes (Hospitalization)
  Sender: FDA-Public Use
  Company Number: CA-JNJFOC-20110600344

PATIENT
  Sex: Male
  Weight: 111.4 kg

DRUGS (16)
  1. OXAZEPAM [Concomitant]
  2. ASPIRIN [Concomitant]
  3. FLAXSEED [Concomitant]
  4. METOPROLOL SUCCINATE [Concomitant]
  5. RAMIPRIL [Concomitant]
  6. ZANTAC [Concomitant]
  7. FENOFIBRATE [Concomitant]
  8. NEXIUM [Concomitant]
  9. CRESTOR [Concomitant]
  10. VOLTAREN [Concomitant]
     Dosage: PRN
  11. MORPHINE [Concomitant]
  12. REMICADE [Suspect]
     Indication: RHEUMATOID ARTHRITIS
     Route: 042
     Dates: start: 20090201
  13. NITRO-DUR [Concomitant]
     Dosage: 0.8 EACH DAY AND 0.2 NIGHTLY
  14. PLAVIX [Concomitant]
  15. NORVASC [Concomitant]
  16. PLAQUENIL [Concomitant]

REACTIONS (3)
  - NAUSEA [None]
  - DIARRHOEA [None]
  - VOMITING [None]
